FAERS Safety Report 23237998 (Version 1)
Quarter: 2023Q4

REPORT INFORMATION
  Report Type: Report from Study
  Country: CN (occurrence: CN)
  Receive Date: 20231129
  Receipt Date: 20231129
  Transmission Date: 20240110
  Serious: Yes (Hospitalization)
  Sender: FDA-Public Use
  Company Number: CN-ANTENGENE-20230701877

PATIENT

DRUGS (8)
  1. TORIPALIMAB [Suspect]
     Active Substance: TORIPALIMAB
     Indication: Cervix carcinoma stage IV
     Dosage: 240 MG, CYCLE
     Route: 041
     Dates: start: 20230323, end: 20230323
  2. TORIPALIMAB [Suspect]
     Active Substance: TORIPALIMAB
     Dosage: 240 MG, CYCLE
     Route: 041
     Dates: start: 20230412, end: 20230412
  3. TORIPALIMAB [Suspect]
     Active Substance: TORIPALIMAB
     Dosage: 240 MG, CYCLE
     Route: 041
     Dates: start: 20230505, end: 20230505
  4. TORIPALIMAB [Suspect]
     Active Substance: TORIPALIMAB
     Dosage: 240 MG, CYCLE
     Route: 041
     Dates: start: 20230525, end: 20230525
  5. TORIPALIMAB [Suspect]
     Active Substance: TORIPALIMAB
     Dosage: 240 MG, CYCLE
     Route: 041
     Dates: start: 20230614, end: 20230614
  6. TORIPALIMAB [Suspect]
     Active Substance: TORIPALIMAB
     Dosage: 240 MG, CYCLE
     Route: 041
     Dates: start: 20230707, end: 20230707
  7. ONATASERTIB [Suspect]
     Active Substance: ONATASERTIB
     Indication: Cervix carcinoma stage IV
     Dosage: 15 MG, DAILY
     Route: 048
     Dates: start: 20230323, end: 20230725
  8. METFORMIN HYDROCHLORIDE [Concomitant]
     Active Substance: METFORMIN HYDROCHLORIDE
     Indication: Hyperglycaemia

REACTIONS (2)
  - Rash erythematous [Recovered/Resolved]
  - Groin abscess [Recovering/Resolving]

NARRATIVE: CASE EVENT DATE: 20230712
